FAERS Safety Report 4886464-8 (Version None)
Quarter: 2006Q1

REPORT INFORMATION
  Report Type: 
  Country: None (occurrence: None)
  Receive Date: 20060118
  Receipt Date: 20060103
  Transmission Date: 20060701
  Serious: Yes (Other)
  Sender: FDA-Public Use
  Company Number: US_0505117795

PATIENT
  Age: 55 Year
  Sex: Female
  Weight: 113.2 kg

DRUGS (38)
  1. ZYPREXA [Suspect]
     Indication: BIPOLAR DISORDER
     Dosage: 10 MG, EACH EVENING, ORAL
     Route: 048
     Dates: start: 20010801, end: 20040601
  2. KLONOPIN [Concomitant]
  3. DITROPAN [Concomitant]
  4. OXYBUTYNIN [Concomitant]
  5. PHENERGAN [Concomitant]
  6. LITHIUM [Concomitant]
  7. VIOXX [Concomitant]
  8. PRILOSEC [Concomitant]
  9. NEXIUM [Concomitant]
  10. POTASSIUM CHLORIDE [Concomitant]
  11. FLONASE [Concomitant]
  12. ISONIAZID [Concomitant]
  13. ASTELIN [Concomitant]
  14. OXYBUTYNIN CHLORIDE [Concomitant]
  15. DOXYCYCLINE [Concomitant]
  16. ZITHROMAX [Concomitant]
  17. GANI-TUSS NR [Concomitant]
  18. FLUOCINONIDE [Concomitant]
  19. LEXAPRO [Concomitant]
  20. PRINZIDE [Concomitant]
  21. BENZTROPINE MESYLATE [Concomitant]
  22. METOPROLOL [Concomitant]
  23. ERYTHROCYIN (ERYTHROMYCIN) [Concomitant]
  24. CELEXA [Concomitant]
  25. AMIBID-DM [Concomitant]
  26. TRIAMCINOLONE [Concomitant]
  27. PLAVIX [Concomitant]
  28. CIPRO [Concomitant]
  29. LOPROX (CICLOPIROX OLAMINE) [Concomitant]
  30. HYDROCODONE BITARTRATE [Concomitant]
  31. SONATA [Concomitant]
  32. ACETAMINOPHEN [Concomitant]
  33. PROMETHAZINE [Concomitant]
  34. CYCLOBENZAPRINE HCL [Concomitant]
  35. GUAIFENESIN [Concomitant]
  36. ASPIRIN [Concomitant]
  37. LASIX [Concomitant]
  38. EVISTA [Concomitant]

REACTIONS (6)
  - BLOOD PRESSURE INCREASED [None]
  - DIABETES MELLITUS NON-INSULIN-DEPENDENT [None]
  - HYPERLIPIDAEMIA [None]
  - PANCREATITIS [None]
  - PLATELET COUNT DECREASED [None]
  - WHITE BLOOD CELL COUNT DECREASED [None]
